FAERS Safety Report 6999879-9 (Version None)
Quarter: 2010Q3

REPORT INFORMATION
  Report Type: 
  Country: None (occurrence: None)
  Receive Date: 20100920
  Receipt Date: 20100412
  Transmission Date: 20110219
  Serious: Yes (Other)
  Sender: FDA-Public Use
  Company Number: US-ASTRAZENECA-2008UW07405

PATIENT
  Sex: Male

DRUGS (5)
  1. SEROQUEL [Suspect]
     Dosage: 100 MG, 100MG PO BID AND 300 PO QHS
     Route: 048
     Dates: start: 20051111
  2. WELLBUTRIN SR [Concomitant]
     Route: 048
     Dates: start: 20061101
  3. CELEXA [Concomitant]
     Route: 048
     Dates: start: 20061101
  4. ACCUPRIL [Concomitant]
     Dates: start: 20060101
  5. TEMAZEPAM [Concomitant]
     Route: 048
     Dates: start: 20060101

REACTIONS (2)
  - DIABETES MELLITUS [None]
  - DIABETIC KETOACIDOSIS [None]
